FAERS Safety Report 5430458-0 (Version None)
Quarter: 2007Q3

REPORT INFORMATION
  Report Type: 
  Country: None (occurrence: None)
  Receive Date: 20070830
  Receipt Date: 20070829
  Transmission Date: 20080115
  Serious: Yes (Hospitalization)
  Sender: FDA-Public Use
  Company Number: ITWYE234429AUG07

PATIENT
  Sex: Female

DRUGS (6)
  1. TAZOCIN [Suspect]
     Indication: PNEUMONITIS
     Route: 042
     Dates: start: 20070731, end: 20070802
  2. PIRALDINA [Concomitant]
     Dosage: 1500 MG
     Dates: start: 20070731, end: 20070802
  3. NEXIUM [Concomitant]
     Dosage: 20 MG
     Dates: start: 20070723, end: 20070827
  4. ETAPIAM [Concomitant]
     Dosage: 1200 MG
     Dates: start: 20070731, end: 20070802
  5. RIFADIN [Suspect]
     Indication: ATYPICAL MYCOBACTERIAL LYMPHADENITIS
     Dates: start: 20070708, end: 20070802
  6. NICOZID [Concomitant]
     Dosage: 300 MG
     Dates: start: 20070731, end: 20070802

REACTIONS (3)
  - ERYTHEMA MULTIFORME [None]
  - HEPATITIS TOXIC [None]
  - PYREXIA [None]
